FAERS Safety Report 25727581 (Version 1)
Quarter: 2025Q3

REPORT INFORMATION
  Report Type: Spontaneous
  Country: US (occurrence: US)
  Receive Date: 20250826
  Receipt Date: 20250826
  Transmission Date: 20251021
  Serious: Yes (Other)
  Sender: GLAXOSMITHKLINE
  Company Number: US-GLAXOSMITHKLINE INC-US2025AMR105864

PATIENT
  Sex: Male
  Weight: 75.283 kg

DRUGS (4)
  1. NUCALA [Suspect]
     Active Substance: MEPOLIZUMAB
     Indication: Product used for unknown indication
     Dosage: 300 MG, Q2W (EVERY 14 DAYS)
  2. ONDANSETRON HYDROCHLORIDE [Concomitant]
     Active Substance: ONDANSETRON HYDROCHLORIDE
     Indication: Pneumonia
  3. FASENRA [Concomitant]
     Active Substance: BENRALIZUMAB
     Indication: Product used for unknown indication
  4. QVAR REDIHALER [Concomitant]
     Active Substance: BECLOMETHASONE DIPROPIONATE
     Indication: Product used for unknown indication

REACTIONS (6)
  - Myocardial infarction [Unknown]
  - Muscle atrophy [Unknown]
  - Arteriosclerosis coronary artery [Unknown]
  - Myalgia [Unknown]
  - Lung disorder [Unknown]
  - Myositis [Unknown]
